FAERS Safety Report 4407261-3 (Version None)
Quarter: 2004Q3

REPORT INFORMATION
  Report Type: 
  Country: None (occurrence: None)
  Receive Date: 20040721
  Receipt Date: 20040630
  Transmission Date: 20050211
  Serious: Yes (Other)
  Sender: FDA-Public Use
  Company Number: USA040771583

PATIENT
  Age: 63 Year
  Sex: Female

DRUGS (1)
  1. EVISTA [Suspect]

REACTIONS (5)
  - ANTINUCLEAR ANTIBODY POSITIVE [None]
  - DRY MOUTH [None]
  - HEPATIC ENZYME INCREASED [None]
  - SYSTEMIC LUPUS ERYTHEMATOSUS [None]
  - WEIGHT DECREASED [None]
